FAERS Safety Report 7082715-2 (Version None)
Quarter: 2010Q4

REPORT INFORMATION
  Report Type: 
  Country: None (occurrence: None)
  Receive Date: 20101104
  Receipt Date: 20101026
  Transmission Date: 20110411
  Serious: Yes (Other)
  Sender: FDA-Public Use
  Company Number: DE-JNJFOC-20101100526

PATIENT

DRUGS (14)
  1. ABCIXIMAB [Suspect]
     Indication: PERCUTANEOUS CORONARY INTERVENTION
     Route: 042
  2. ABCIXIMAB [Suspect]
     Route: 042
  3. ABCIXIMAB [Suspect]
     Indication: MYOCARDIAL INFARCTION
     Route: 042
  4. ABCIXIMAB [Suspect]
     Route: 042
  5. ASPIRIN [Concomitant]
     Indication: PERCUTANEOUS CORONARY INTERVENTION
     Route: 048
  6. ASPIRIN [Concomitant]
     Route: 048
  7. ASPIRIN [Concomitant]
     Indication: MYOCARDIAL INFARCTION
     Route: 048
  8. ASPIRIN [Concomitant]
     Route: 048
  9. CLOPIDOGREL [Concomitant]
     Indication: PERCUTANEOUS CORONARY INTERVENTION
     Route: 048
  10. CLOPIDOGREL [Concomitant]
     Route: 048
  11. CLOPIDOGREL [Concomitant]
     Indication: MYOCARDIAL INFARCTION
     Route: 048
  12. CLOPIDOGREL [Concomitant]
     Route: 048
  13. HEPARIN [Concomitant]
     Indication: PERCUTANEOUS CORONARY INTERVENTION
     Route: 042
  14. HEPARIN [Concomitant]
     Indication: MYOCARDIAL INFARCTION
     Route: 042

REACTIONS (1)
  - PERICARDIAL EFFUSION [None]
